FAERS Safety Report 4563487-X (Version None)
Quarter: 2005Q1

REPORT INFORMATION
  Report Type: 
  Country: None (occurrence: None)
  Receive Date: 20050128
  Receipt Date: 20050124
  Transmission Date: 20050727
  Serious: Yes (Death)
  Sender: FDA-Public Use
  Company Number: PHFR2005GB00622

PATIENT
  Age: 44 Year
  Sex: Male

DRUGS (8)
  1. CLOZARIL [Suspect]
     Indication: SCHIZOPHRENIA
     Route: 048
     Dates: start: 19990301, end: 20040822
  2. METHADONE HCL [Suspect]
     Route: 065
  3. ATENOLOL [Concomitant]
     Indication: HYPERTENSION
     Dosage: 5MG/DAY
     Route: 065
  4. LANSOPRAZOLE [Concomitant]
     Indication: STOMACH DISCOMFORT
     Dosage: 15MG/DAY
     Route: 065
  5. BUSPIRONE [Concomitant]
     Indication: ANXIETY
     Dosage: 15MG/DAY
     Route: 048
  6. THIAMINE [Concomitant]
     Indication: ALCOHOLISM
     Dosage: 150MG/DAY
     Route: 065
  7. PAROXETINE HCL [Concomitant]
     Indication: DEPRESSION
     Dosage: 40MG/DAY
     Route: 065
  8. CLOZAPINE [Suspect]

REACTIONS (2)
  - DRUG ABUSER [None]
  - PULMONARY EMBOLISM [None]
